FAERS Safety Report 8838093 (Version 3)
Quarter: 2012Q4

REPORT INFORMATION
  Report Type: 
  Country: US (occurrence: US)
  Receive Date: 20121012
  Receipt Date: 20121213
  Transmission Date: 20130627
  Serious: Yes (Hospitalization, Other)
  Sender: FDA-Public Use
  Company Number: US-ASTELLAS-2012US009965

PATIENT
  Age: 41 Year
  Sex: Female
  Weight: 54 kg

DRUGS (4)
  1. PROGRAF [Suspect]
     Indication: BONE MARROW TRANSPLANT
     Dosage: 2 mg, bid
     Route: 048
     Dates: start: 2009
  2. PREDNISONE [Concomitant]
     Indication: BONE MARROW TRANSPLANT
     Dosage: 7.5 mg, UID/QD
     Route: 048
     Dates: start: 200908
  3. ACYCLOVIR                          /00587301/ [Concomitant]
     Indication: IMMUNE SYSTEM DISORDER
     Dosage: 800 mg, bid
     Route: 048
     Dates: start: 201201
  4. URSODIOL [Concomitant]
     Indication: LIVER DISORDER
     Dosage: 300 mg, UID/QD
     Route: 048
     Dates: start: 20090505

REACTIONS (5)
  - Off label use [Unknown]
  - Graft versus host disease [Not Recovered/Not Resolved]
  - Transplant rejection [Not Recovered/Not Resolved]
  - Malaise [Not Recovered/Not Resolved]
  - Rash [Not Recovered/Not Resolved]
